FAERS Safety Report 17711822 (Version 1)
Quarter: 2020Q2

REPORT INFORMATION
  Report Type: Spontaneous
  Country: CN (occurrence: CN)
  Receive Date: 20200427
  Receipt Date: 20200427
  Transmission Date: 20200714
  Serious: Yes (Other)
  Sender: FDA-Public Use
  Company Number: CN-PFIZER INC-2020163909

PATIENT
  Age: 73 Year
  Sex: Male
  Weight: 45 kg

DRUGS (1)
  1. SOLU-MEDROL [Suspect]
     Active Substance: METHYLPREDNISOLONE SODIUM SUCCINATE
     Indication: GOUT
     Dosage: 20 MG, 1X/DAY
     Route: 041
     Dates: start: 20200331, end: 20200411

REACTIONS (3)
  - Blood glucose increased [Recovering/Resolving]
  - Abdominal discomfort [Recovering/Resolving]
  - Gastrooesophageal reflux disease [Recovering/Resolving]

NARRATIVE: CASE EVENT DATE: 20200411
